FAERS Safety Report 6102705-3 (Version None)
Quarter: 2009Q1

REPORT INFORMATION
  Report Type: 
  Country: None (occurrence: None)
  Receive Date: 20090304
  Receipt Date: 20090225
  Transmission Date: 20090719
  Serious: Yes (Other)
  Sender: FDA-Public Use
  Company Number: US-WYE-H08414309

PATIENT
  Sex: Female
  Weight: 49.94 kg

DRUGS (3)
  1. PREMARIN [Suspect]
  2. ESTRATEST H.S. [Suspect]
  3. PROVERA [Suspect]

REACTIONS (1)
  - BREAST CANCER METASTATIC [None]
